FAERS Safety Report 5133371-1 (Version None)
Quarter: 2006Q4

REPORT INFORMATION
  Report Type: 
  Country: None (occurrence: None)
  Receive Date: 20061024
  Receipt Date: 20060821
  Transmission Date: 20070319
  Serious: Yes (Hospitalization, Other)
  Sender: FDA-Public Use
  Company Number: AU-RB-3790-2006

PATIENT
  Age: 51 Year
  Sex: Female
  Weight: 66 kg

DRUGS (3)
  1. SUBOXONE [Suspect]
     Indication: DRUG USE FOR UNKNOWN INDICATION
     Route: 060
  2. SEROQUEL [Concomitant]
     Route: 048
     Dates: start: 20051115, end: 20060615
  3. EFFEXOR XR [Concomitant]
     Indication: DEPRESSION
     Route: 048
     Dates: end: 20060615

REACTIONS (1)
  - GRAND MAL CONVULSION [None]
